FAERS Safety Report 6068758-6 (Version None)
Quarter: 2009Q1

REPORT INFORMATION
  Report Type: 
  Country: None (occurrence: None)
  Receive Date: 20090203
  Receipt Date: 20090119
  Transmission Date: 20090719
  Serious: Yes (Death, Other)
  Sender: FDA-Public Use
  Company Number: 2008001615

PATIENT
  Age: 61 Year
  Sex: Female

DRUGS (19)
  1. ERLOTINIB(ERLOTINIB) (TABLET) (ERLOTINIB) [Suspect]
     Indication: LUNG ADENOCARCINOMA
     Dosage: (150 MG,QD),ORAL
     Route: 048
     Dates: start: 20080422, end: 20080624
  2. IRESSA [Suspect]
     Dosage: ORAL
     Route: 048
     Dates: start: 20080201, end: 20080401
  3. CARBOPLATIN [Concomitant]
  4. PACLITAXEL [Concomitant]
  5. TAXOTERE [Concomitant]
  6. TS-1 [Concomitant]
  7. GEMZAR [Concomitant]
  8. CISPLATIN [Concomitant]
  9. NAVELBINE [Concomitant]
  10. BETAMETHASONE [Concomitant]
  11. MUCOSTA (REBAMIPIDE) [Concomitant]
  12. ZANTAC 150 [Concomitant]
  13. NOVAMIN (PROCHLORPERAZINE) [Concomitant]
  14. MS CONTIN [Concomitant]
  15. MORPHINE [Concomitant]
  16. ENSURE LIQUID [Concomitant]
  17. MAGNESIUM OXIDE (MAGNESIUM OXIDE) [Concomitant]
  18. DEPAS (ETIZOLAM) [Concomitant]
  19. LORAZEPAM [Concomitant]

REACTIONS (8)
  - BLOOD LACTATE DEHYDROGENASE INCREASED [None]
  - DIARRHOEA [None]
  - HEPATIC FUNCTION ABNORMAL [None]
  - HERPES ZOSTER [None]
  - INGROWING NAIL [None]
  - LUNG ADENOCARCINOMA [None]
  - MALIGNANT NEOPLASM PROGRESSION [None]
  - RASH PAPULAR [None]
